FAERS Safety Report 16831393 (Version 1)
Quarter: 2019Q3

REPORT INFORMATION
  Report Type: Spontaneous
  Country: US (occurrence: US)
  Receive Date: 20190920
  Receipt Date: 20190920
  Transmission Date: 20191005
  Serious: Yes (Death, Hospitalization, Other)
  Sender: FDA-Public Use
  Company Number: US-ZYDUS-040701

PATIENT
  Age: 14 Year
  Sex: Female

DRUGS (3)
  1. IBUPROFEN. [Suspect]
     Active Substance: IBUPROFEN
     Indication: PRODUCT USED FOR UNKNOWN INDICATION
     Route: 048
  2. NAPROXEN. [Suspect]
     Active Substance: NAPROXEN
     Indication: PRODUCT USED FOR UNKNOWN INDICATION
     Dosage: SEVERAL 750 MG NAPROXEN
     Route: 048
  3. HYDROXYCHLOROQUINE [Suspect]
     Active Substance: HYDROXYCHLOROQUINE
     Indication: PRODUCT USED FOR UNKNOWN INDICATION
     Dosage: APPROXIMATELY 60 TABLETS
     Route: 048

REACTIONS (10)
  - Cardiac arrest [Unknown]
  - Pulmonary oedema [Unknown]
  - Metabolic acidosis [Unknown]
  - Pupil fixed [Unknown]
  - Hypotension [Unknown]
  - Toxicity to various agents [Fatal]
  - Hypokalaemia [Unknown]
  - Intentional overdose [Unknown]
  - Renal failure [Unknown]
  - Mydriasis [Unknown]
